FAERS Safety Report 6304939-1 (Version None)
Quarter: 2009Q3

REPORT INFORMATION
  Report Type: 
  Country: None (occurrence: None)
  Receive Date: 20090811
  Receipt Date: 20090521
  Transmission Date: 20100115
  Serious: Yes (Other)
  Sender: FDA-Public Use
  Company Number: IE-TEVA-205345ISR

PATIENT
  Age: 23 Year

DRUGS (1)
  1. GABAPENTIN [Suspect]

REACTIONS (1)
  - LIVER INJURY [None]
